FAERS Safety Report 6250087-9 (Version None)
Quarter: 2009Q2

REPORT INFORMATION
  Report Type: 
  Country: None (occurrence: None)
  Receive Date: 20090625
  Receipt Date: 20090616
  Transmission Date: 20091009
  Serious: Yes (Disabling)
  Sender: FDA-Public Use
  Company Number: GXKR2009GB06988

PATIENT
  Age: 45 Year
  Sex: Male
  Weight: 71.7 kg

DRUGS (1)
  1. DOXYCYCLINE [Suspect]
     Indication: MALARIA PROPHYLAXIS
     Dosage: 100 MG, ORAL
     Route: 048
     Dates: start: 20081204, end: 20081211

REACTIONS (1)
  - BLISTER [None]
